FAERS Safety Report 11026961 (Version 1)
Quarter: 2015Q2

REPORT INFORMATION
  Report Type: Spontaneous
  Country: FR (occurrence: FR)
  Receive Date: 20150414
  Receipt Date: 20150414
  Transmission Date: 20150821
  Serious: Yes (Other)
  Sender: FDA-Public Use
  Company Number: FR-ELI_LILLY_AND_COMPANY-FR201504002892

PATIENT
  Age: 54 Year
  Sex: Male

DRUGS (2)
  1. CIALIS [Suspect]
     Active Substance: TADALAFIL
     Indication: ERECTILE DYSFUNCTION
     Dosage: 20 MG, PRN
     Route: 048
  2. CIALIS [Suspect]
     Active Substance: TADALAFIL
     Dosage: 5 MG, UNKNOWN
     Route: 048

REACTIONS (8)
  - Vision blurred [Unknown]
  - Wrong technique in drug usage process [Unknown]
  - VIIth nerve paralysis [Unknown]
  - Vertigo [Unknown]
  - Ear pain [Unknown]
  - Gait disturbance [Unknown]
  - Hypoaesthesia [Unknown]
  - Herpes zoster [Unknown]
